FAERS Safety Report 13117425 (Version 3)
Quarter: 2017Q1

REPORT INFORMATION
  Report Type: Spontaneous
  Country: JP (occurrence: JP)
  Receive Date: 20170116
  Receipt Date: 20170302
  Transmission Date: 20170428
  Serious: Yes (Other)
  Sender: FDA-Public Use
  Company Number: JP-ASTRAZENECA-2016SF34794

PATIENT
  Age: 26228 Day
  Sex: Female
  Weight: 34 kg

DRUGS (22)
  1. SEROQUEL [Interacting]
     Active Substance: QUETIAPINE FUMARATE
     Indication: NAUSEA
     Route: 048
     Dates: start: 20160921, end: 20161012
  2. METHADONE HYDROCHLORIDE. [Interacting]
     Active Substance: METHADONE HYDROCHLORIDE
     Indication: PANCREATIC CARCINOMA
     Route: 048
     Dates: end: 20161031
  3. METHADONE HYDROCHLORIDE. [Interacting]
     Active Substance: METHADONE HYDROCHLORIDE
     Indication: PANCREATIC CARCINOMA
     Route: 048
     Dates: start: 20161101, end: 20161213
  4. SEROQUEL [Interacting]
     Active Substance: QUETIAPINE FUMARATE
     Indication: PANCREATIC CARCINOMA
     Route: 048
     Dates: start: 20160921, end: 20161012
  5. METHADONE HYDROCHLORIDE. [Interacting]
     Active Substance: METHADONE HYDROCHLORIDE
     Indication: PANCREATIC CARCINOMA
     Route: 048
  6. METHADONE HYDROCHLORIDE. [Interacting]
     Active Substance: METHADONE HYDROCHLORIDE
     Indication: BENIGN BONE NEOPLASM
     Route: 048
     Dates: start: 20161101, end: 20161213
  7. CELECOX [Concomitant]
     Active Substance: CELECOXIB
     Dosage: 100.0MG UNKNOWN
     Route: 048
     Dates: end: 20161012
  8. POLARAMINE [Concomitant]
     Active Substance: DEXCHLORPHENIRAMINE MALEATE
     Dosage: 2.0MG UNKNOWN
     Route: 048
     Dates: start: 20160923, end: 20161012
  9. OXINORM [Concomitant]
     Active Substance: OXYCODONE HYDROCHLORIDE
     Dosage: 10.0MG UNKNOWN
     Route: 048
     Dates: end: 20161011
  10. METHADONE HYDROCHLORIDE. [Interacting]
     Active Substance: METHADONE HYDROCHLORIDE
     Indication: PAIN
     Route: 048
  11. LYRICA [Concomitant]
     Active Substance: PREGABALIN
     Dosage: 75.0MG UNKNOWN
     Route: 048
     Dates: end: 20161012
  12. METHADONE HYDROCHLORIDE. [Interacting]
     Active Substance: METHADONE HYDROCHLORIDE
     Indication: PAIN
     Route: 048
     Dates: end: 20161011
  13. METHADONE HYDROCHLORIDE. [Interacting]
     Active Substance: METHADONE HYDROCHLORIDE
     Indication: BENIGN BONE NEOPLASM
     Route: 048
     Dates: end: 20161011
  14. METHADONE HYDROCHLORIDE. [Interacting]
     Active Substance: METHADONE HYDROCHLORIDE
     Indication: PAIN
     Route: 048
     Dates: start: 20161101, end: 20161213
  15. ZYPREXA [Concomitant]
     Active Substance: OLANZAPINE
     Route: 065
  16. SEROQUEL [Interacting]
     Active Substance: QUETIAPINE FUMARATE
     Indication: PANCREATIC CARCINOMA
     Route: 048
     Dates: start: 20160912, end: 20160920
  17. METHADONE HYDROCHLORIDE. [Interacting]
     Active Substance: METHADONE HYDROCHLORIDE
     Indication: BENIGN BONE NEOPLASM
     Route: 048
  18. SEROQUEL [Suspect]
     Active Substance: QUETIAPINE FUMARATE
     Indication: NAUSEA
     Route: 048
     Dates: start: 20160912, end: 20160920
  19. METHADONE HYDROCHLORIDE. [Interacting]
     Active Substance: METHADONE HYDROCHLORIDE
     Indication: PAIN
     Route: 048
     Dates: end: 20161031
  20. METHADONE HYDROCHLORIDE. [Interacting]
     Active Substance: METHADONE HYDROCHLORIDE
     Indication: BENIGN BONE NEOPLASM
     Route: 048
     Dates: end: 20161031
  21. METHADONE HYDROCHLORIDE. [Interacting]
     Active Substance: METHADONE HYDROCHLORIDE
     Indication: PANCREATIC CARCINOMA
     Route: 048
     Dates: end: 20161011
  22. ELIQUIS [Concomitant]
     Active Substance: APIXABAN
     Dosage: 2.5MG UNKNOWN
     Route: 048
     Dates: start: 20160924, end: 20161012

REACTIONS (12)
  - Pyrexia [Recovered/Resolved]
  - Product use issue [Unknown]
  - Hypercoagulation [Recovered/Resolved]
  - Transient ischaemic attack [Recovered/Resolved]
  - Drug interaction [Recovered/Resolved]
  - Therapy cessation [Unknown]
  - Off label use [Unknown]
  - Hemiplegia [Recovered/Resolved]
  - Decreased appetite [Recovering/Resolving]
  - Intentional product misuse [Unknown]
  - Hypoglycaemia [Recovered/Resolved]
  - Asterixis [Recovered/Resolved]

NARRATIVE: CASE EVENT DATE: 20160912
